FAERS Safety Report 9411292 (Version 3)
Quarter: 2013Q3

REPORT INFORMATION
  Report Type: Spontaneous
  Country: US (occurrence: US)
  Receive Date: 20130722
  Receipt Date: 20130916
  Transmission Date: 20140515
  Serious: Yes (Hospitalization)
  Sender: FDA-Public Use
  Company Number: US-BIOGENIDEC-2013BI064897

PATIENT
  Age: 60 Year
  Sex: Female

DRUGS (10)
  1. TECFIDERA [Suspect]
     Indication: MULTIPLE SCLEROSIS
     Route: 048
     Dates: start: 20130619
  2. TECFIDERA [Suspect]
     Indication: MULTIPLE SCLEROSIS
     Route: 048
     Dates: start: 20130622, end: 20130628
  3. TECFIDERA [Suspect]
     Indication: MULTIPLE SCLEROSIS
     Route: 048
     Dates: start: 20130629
  4. LORTAB [Concomitant]
  5. NEXIUM [Concomitant]
  6. GAS-X [Concomitant]
  7. GABAPENTIN [Concomitant]
  8. FROVA [Concomitant]
  9. CLONIDINE [Concomitant]
  10. CLONAZEPAM [Concomitant]

REACTIONS (2)
  - Pancreatitis [Not Recovered/Not Resolved]
  - Thrombosis [Recovered/Resolved]
